FAERS Safety Report 13408304 (Version 1)
Quarter: 2017Q2

REPORT INFORMATION
  Report Type: Spontaneous
  Country: US (occurrence: US)
  Receive Date: 20170406
  Receipt Date: 20170406
  Transmission Date: 20170830
  Serious: No
  Sender: FDA-Public Use
  Company Number: US-ASTRAZENECA-2017SE33572

PATIENT
  Age: 58 Year
  Sex: Female
  Weight: 90.7 kg

DRUGS (2)
  1. ASPIRIN. [Concomitant]
     Active Substance: ASPIRIN
     Indication: ADJUVANT THERAPY
     Route: 048
     Dates: start: 201601
  2. BRILINTA [Suspect]
     Active Substance: TICAGRELOR
     Indication: CAROTID ARTERY OCCLUSION
     Route: 048
     Dates: start: 201601

REACTIONS (10)
  - Hypercoagulation [Not Recovered/Not Resolved]
  - Bleeding time prolonged [Recovered/Resolved]
  - Off label use [Not Recovered/Not Resolved]
  - Injury [Not Recovered/Not Resolved]
  - Petechiae [Recovered/Resolved]
  - Product use issue [Not Recovered/Not Resolved]
  - Drug ineffective [Not Recovered/Not Resolved]
  - Platelet aggregation normal [Not Recovered/Not Resolved]
  - Contusion [Recovered/Resolved]
  - Skin exfoliation [Recovered/Resolved]

NARRATIVE: CASE EVENT DATE: 2016
